FAERS Safety Report 9780195 (Version 2)
Quarter: 2013Q4

REPORT INFORMATION
  Report Type: Report from Study
  Country: DE (occurrence: DE)
  Receive Date: 20131223
  Receipt Date: 20131223
  Transmission Date: 20140711
  Serious: Yes (Death, Other)
  Sender: FDA-Public Use
  Company Number: DE-009507513-1108DEU00004

PATIENT
  Age: 43 Year
  Sex: Male
  Weight: 82 kg

DRUGS (21)
  1. CASPOFUNGIN ACETATE [Suspect]
     Dosage: 70 MG, QD
     Route: 042
     Dates: start: 20080531, end: 20080531
  2. CASPOFUNGIN ACETATE [Suspect]
     Dosage: 50 MG, QD
     Route: 042
     Dates: start: 20080601, end: 20080602
  3. CASPOFUNGIN ACETATE [Suspect]
     Dosage: 70 MG, QD
     Route: 042
     Dates: start: 20080605, end: 20080605
  4. CASPOFUNGIN ACETATE [Suspect]
     Dosage: 50 MG, QD
     Route: 042
     Dates: start: 20080606, end: 20080616
  5. PANTOPRAZOLE [Concomitant]
  6. ACYCLOVIR [Concomitant]
  7. NITRENDIPINE [Concomitant]
  8. METOCLOPRAMIDE [Concomitant]
  9. CETIRIZINE HYDROCHLORIDE [Concomitant]
  10. TORSEMIDE [Concomitant]
  11. LEVOFLOXACIN [Concomitant]
  12. PREDNISOLONE [Concomitant]
  13. SULFAMETHOXAZOLE (+) TRIMETHOPRIM [Concomitant]
  14. CYCLOSPORINE [Concomitant]
  15. MERONEM [Concomitant]
  16. HEPARIN [Concomitant]
  17. FUROSEMIDE [Concomitant]
  18. DEXAMETHASONE [Concomitant]
  19. CEFTAZIDIME [Concomitant]
  20. VANCOMYCIN [Concomitant]
  21. CLEXANE (ENOXAPARIN SODIUM) [Concomitant]

REACTIONS (7)
  - Death [Fatal]
  - Alanine aminotransferase increased [Recovered/Resolved]
  - Blood bilirubin increased [Recovered/Resolved]
  - Acute lymphocytic leukaemia recurrent [Unknown]
  - Chemotherapy [Unknown]
  - Neutropenia [Unknown]
  - Bronchopulmonary aspergillosis [Unknown]
